FAERS Safety Report 5265430-7 (Version None)
Quarter: 2007Q1

REPORT INFORMATION
  Report Type: 
  Country: None (occurrence: None)
  Receive Date: 20070314
  Receipt Date: 20070305
  Transmission Date: 20070707
  Serious: Yes (Hospitalization)
  Sender: FDA-Public Use
  Company Number: CH-SHR-CH-2007-003081

PATIENT
  Age: 44 Year
  Sex: Female
  Weight: 86 kg

DRUGS (3)
  1. MIRENA [Suspect]
     Dosage: 20 A?G/DAY, CONT
     Route: 015
     Dates: start: 20060829, end: 20061220
  2. LORAZEPAM [Concomitant]
  3. CITALOPRAM HYDROBROMIDE [Concomitant]

REACTIONS (3)
  - DEPRESSION [None]
  - FALLOPIAN TUBE CYST [None]
  - OVARIAN CYST [None]
